FAERS Safety Report 4465028-4 (Version None)
Quarter: 2004Q3

REPORT INFORMATION
  Report Type: 
  Country: None (occurrence: None)
  Receive Date: 20040929
  Receipt Date: 20040913
  Transmission Date: 20050211
  Serious: Yes (Hospitalization, Other)
  Sender: FDA-Public Use
  Company Number: USA040978041

PATIENT
  Age: 64 Year
  Sex: Male
  Weight: 82 kg

DRUGS (1)
  1. HUMULIN N [Suspect]
     Dosage: 35 U DAY
     Dates: start: 19820101

REACTIONS (5)
  - CARDIAC DISORDER [None]
  - COLON CANCER [None]
  - CORONARY ARTERY SURGERY [None]
  - MYOCARDIAL INFARCTION [None]
  - PROSTATE CANCER [None]
